FAERS Safety Report 6994075-3 (Version None)
Quarter: 2010Q3

REPORT INFORMATION
  Report Type: 
  Country: None (occurrence: None)
  Receive Date: 20100917
  Receipt Date: 20070619
  Transmission Date: 20110219
  Serious: Yes (Other)
  Sender: FDA-Public Use
  Company Number: US-ASTRAZENECA-2006UW23575

PATIENT
  Sex: Female
  Weight: 77.1 kg

DRUGS (10)
  1. SEROQUEL [Suspect]
     Indication: SCHIZOPHRENIA
     Dosage: 50 - 200 MG DAILY
     Route: 048
     Dates: start: 20050615
  2. SEROQUEL [Suspect]
     Route: 048
  3. HALDOL [Concomitant]
     Dates: start: 19990119
  4. ZYPREXA [Concomitant]
     Dosage: 5 MG - 10 MG DAILY
     Dates: start: 20001110
  5. MARIJUANA [Concomitant]
     Dates: start: 19800101
  6. VALPROIC ACID [Concomitant]
     Dosage: 750 MG - 1000 MG DAILY
     Dates: start: 20050615
  7. COGENTIN [Concomitant]
     Dates: start: 19990119
  8. PROZAC [Concomitant]
     Dates: start: 20050615
  9. NEURONTIN [Concomitant]
     Dates: start: 19990119
  10. PAXIL [Concomitant]
     Dates: start: 19990119

REACTIONS (2)
  - DIABETES MELLITUS [None]
  - PANCREATITIS [None]
